FAERS Safety Report 9013106 (Version 1)
Quarter: 2013Q1

REPORT INFORMATION
  Report Type: Spontaneous
  Country: GB (occurrence: GB)
  Receive Date: 20130114
  Receipt Date: 20130114
  Transmission Date: 20140127
  Serious: Yes (Death, Hospitalization)
  Sender: FDA-Public Use
  Company Number: GB-TEVA-379148ISR

PATIENT
  Age: 75 Year
  Sex: Male
  Weight: 110 kg

DRUGS (7)
  1. WARFARIN [Suspect]
     Indication: ATRIAL FIBRILLATION
     Route: 048
     Dates: end: 20121002
  2. ATORVASTATIN [Concomitant]
  3. DOXAZOSIN [Concomitant]
  4. ATENOLOL [Concomitant]
  5. FUROSEMIDE [Concomitant]
  6. DIGOXIN [Concomitant]
  7. LISINOPRIL [Concomitant]

REACTIONS (3)
  - Haemorrhage intracranial [Fatal]
  - Arthritis bacterial [Fatal]
  - Respiratory arrest [Fatal]
